FAERS Safety Report 9828312 (Version 1)
Quarter: 2014Q1

REPORT INFORMATION
  Report Type: Spontaneous
  Country: GB (occurrence: GB)
  Receive Date: 20140117
  Receipt Date: 20140117
  Transmission Date: 20141002
  Serious: Yes (Other)
  Sender: FDA-Public Use
  Company Number: PHHY2014GB003462

PATIENT
  Age: 60 Year
  Sex: Male
  Weight: 112.3 kg

DRUGS (6)
  1. BISOPROLOL FUMARATE [Suspect]
     Indication: ATRIAL FIBRILLATION
     Route: 048
  2. WARFARIN [Concomitant]
  3. VALSARTAN [Concomitant]
  4. AMLODIPINE [Concomitant]
  5. FUROSEMIDE [Concomitant]
  6. ZANTAC [Concomitant]

REACTIONS (2)
  - Anxiety [Recovering/Resolving]
  - Anger [Recovering/Resolving]
